FAERS Safety Report 12178059 (Version 1)
Quarter: 2016Q1

REPORT INFORMATION
  Report Type: Report from Study
  Country: ZA (occurrence: ZA)
  Receive Date: 20160315
  Receipt Date: 20160315
  Transmission Date: 20160526
  Serious: Yes (Hospitalization)
  Sender: FDA-Public Use
  Company Number: ZA-ROCHE-1725737

PATIENT
  Age: 42 Year
  Sex: Female

DRUGS (1)
  1. MABTHERA [Suspect]
     Active Substance: RITUXIMAB
     Indication: RHEUMATOID ARTHRITIS
     Dosage: !G ON DAY 1 AND 1G ON DAY 15 EVERY 6 MONTHS
     Route: 042
     Dates: start: 20160303

REACTIONS (3)
  - Ulcer [Unknown]
  - Oral pain [Unknown]
  - Hypertension [Unknown]

NARRATIVE: CASE EVENT DATE: 20160303
